FAERS Safety Report 6066176-8 (Version None)
Quarter: 2009Q1

REPORT INFORMATION
  Report Type: 
  Country: None (occurrence: None)
  Receive Date: 20090205
  Receipt Date: 20090127
  Transmission Date: 20090719
  Serious: Yes (Hospitalization)
  Sender: FDA-Public Use
  Company Number: PHHY2009FR03508

PATIENT
  Sex: Female

DRUGS (10)
  1. LAMISIL [Suspect]
     Dosage: 250 MG/DAY
     Route: 048
     Dates: start: 20080209, end: 20081017
  2. ZINNAT [Suspect]
     Dosage: 500 MG/DAY
     Route: 048
     Dates: start: 20080225, end: 20081017
  3. ZINNAT [Suspect]
     Dosage: 500 MG/DAY
     Route: 048
     Dates: start: 20081027, end: 20081030
  4. CIFLOX [Suspect]
     Dosage: UNK
     Route: 048
     Dates: start: 20080225, end: 20081017
  5. CALCIPARINE [Concomitant]
     Dosage: 0.2 ML
     Dates: end: 20081024
  6. DIGOXIN [Concomitant]
     Dosage: 1 DF/DAY
  7. KARDEGIC [Concomitant]
     Dosage: 75 MG/DAY
  8. NEURONTIN [Concomitant]
     Dosage: 1800 MG/DAY (600 MG THRICE DAILY)
  9. LAROXYL [Concomitant]
  10. COVERSYL [Concomitant]
     Dosage: 2 MG/DAY
     Dates: start: 20080201

REACTIONS (7)
  - COAGULATION FACTOR DECREASED [None]
  - INFLAMMATION [None]
  - ORTHOPEDIC PROCEDURE [None]
  - OSTEITIS [None]
  - PURULENT DISCHARGE [None]
  - SKIN EXFOLIATION [None]
  - THROMBOCYTOPENIA [None]
